FAERS Safety Report 23817054 (Version 1)
Quarter: 2024Q2

REPORT INFORMATION
  Report Type: Spontaneous
  Country: US (occurrence: US)
  Receive Date: 20240504
  Receipt Date: 20240504
  Transmission Date: 20240715
  Serious: Yes (Life-Threatening, Hospitalization, Other)
  Sender: FDA-Public Use
  Company Number: US-MLMSERVICE-20240417-PI029921-00306-1

PATIENT
  Age: 81 Year
  Sex: Male

DRUGS (4)
  1. TACROLIMUS [Interacting]
     Active Substance: TACROLIMUS
     Indication: Immunosuppressant drug therapy
  2. RITONAVIR [Interacting]
     Active Substance: RITONAVIR
     Indication: COVID-19
  3. NIRMATRELVIR [Interacting]
     Active Substance: NIRMATRELVIR
     Indication: COVID-19
  4. TAMIFLU [Concomitant]
     Active Substance: OSELTAMIVIR PHOSPHATE
     Indication: COVID-19

REACTIONS (12)
  - Lactic acidosis [Recovered/Resolved]
  - Liver injury [Recovered/Resolved]
  - Bacterial translocation [Recovered/Resolved]
  - Drug interaction [Unknown]
  - Toxicity to various agents [Recovered/Resolved]
  - Multiple organ dysfunction syndrome [Recovered/Resolved]
  - Hypoperfusion [Recovered/Resolved]
  - Septic shock [Recovered/Resolved]
  - Hypoxia [Recovered/Resolved]
  - Ischaemic hepatitis [Recovered/Resolved]
  - Acute kidney injury [Recovered/Resolved]
  - Escherichia bacteraemia [Recovered/Resolved]
